FAERS Safety Report 25435794 (Version 1)
Quarter: 2025Q2

REPORT INFORMATION
  Report Type: Spontaneous
  Country: US (occurrence: US)
  Receive Date: 20250613
  Receipt Date: 20250613
  Transmission Date: 20250717
  Serious: Yes (Other)
  Sender: STANDARD HOMEOPATHIC
  Company Number: US-Standard Homeopathic-2178688

PATIENT
  Age: 7 Year
  Sex: Male

DRUGS (1)
  1. 4 KIDS COLD AND COUGH DAY AND NIGHT GRAPE FLAVOR [Suspect]
     Active Substance: HOMEOPATHICS
     Indication: Nasopharyngitis
     Dates: start: 20250526

REACTIONS (1)
  - Hypersensitivity [Recovered/Resolved]

NARRATIVE: CASE EVENT DATE: 20250526
